FAERS Safety Report 18695254 (Version 1)
Quarter: 2021Q1

REPORT INFORMATION
  Report Type: Spontaneous
  Country: FR (occurrence: FR)
  Receive Date: 20210104
  Receipt Date: 20210104
  Transmission Date: 20210419
  Serious: Yes (Other)
  Sender: FDA-Public Use
  Company Number: FR-PFIZER INC-2020516970

PATIENT
  Age: 82 Year
  Sex: Male
  Weight: 112 kg

DRUGS (1)
  1. INLYTA [Suspect]
     Active Substance: AXITINIB
     Indication: RENAL CANCER
     Dosage: 10 MG, 1X/DAY
     Route: 048
     Dates: start: 20200831, end: 202010

REACTIONS (2)
  - Off label use [Unknown]
  - Aphonia [Recovered/Resolved]

NARRATIVE: CASE EVENT DATE: 202009
